FAERS Safety Report 8762681 (Version 1)
Quarter: 2012Q4

REPORT INFORMATION
  Report Type: 
  Country: IL (occurrence: IL)
  Receive Date: 20120831
  Receipt Date: 20120831
  Transmission Date: 20130627
  Serious: Yes (Hospitalization, Other)
  Sender: FDA-Public Use
  Company Number: IL-B.I. PHARMACEUTICALS,INC./RIDGEFIELD-2012-AP-00695RI

PATIENT
  Age: 88 Year
  Sex: Female

DRUGS (5)
  1. PRADAXA [Suspect]
     Indication: ATRIAL FIBRILLATION
     Dosage: 300 mg
     Route: 048
     Dates: end: 20120820
  2. ASPIRIN [Concomitant]
  3. PROCOR [Concomitant]
  4. SIMVACOR [Concomitant]
  5. FUSID [Concomitant]

REACTIONS (4)
  - Gastrointestinal haemorrhage [Unknown]
  - Haemoglobin decreased [Unknown]
  - Renal impairment [Unknown]
  - Pubis fracture [Not Recovered/Not Resolved]
